FAERS Safety Report 6903651-5 (Version None)
Quarter: 2010Q3

REPORT INFORMATION
  Report Type: 
  Country: None (occurrence: None)
  Receive Date: 20100803
  Receipt Date: 20081101
  Transmission Date: 20110219
  Serious: Yes (Other)
  Sender: FDA-Public Use
  Company Number: US-PFIZER INC-2008092266

PATIENT
  Sex: Female
  Weight: 54.4 kg

DRUGS (12)
  1. LYRICA [Suspect]
     Indication: FIBROMYALGIA
     Route: 048
     Dates: start: 20081029
  2. SPIRIVA [Concomitant]
  3. NASACORT [Concomitant]
     Route: 045
  4. MUCINEX [Concomitant]
  5. XANAX [Concomitant]
  6. EFFEXOR [Concomitant]
  7. PERCOCET [Concomitant]
  8. LASIX [Concomitant]
  9. MULTIPLE VITAMIN [Concomitant]
  10. ALLERGY MEDICATION [Concomitant]
  11. CLARITHROMYCIN [Concomitant]
     Indication: SINUS DISORDER
  12. WARFARIN SODIUM [Concomitant]
     Indication: CARDIAC DISORDER

REACTIONS (6)
  - AMNESIA [None]
  - DISTURBANCE IN ATTENTION [None]
  - DYSPNOEA [None]
  - ILL-DEFINED DISORDER [None]
  - MEMORY IMPAIRMENT [None]
  - WHEEZING [None]
